FAERS Safety Report 20961188 (Version 1)
Quarter: 2022Q2

REPORT INFORMATION
  Report Type: Spontaneous
  Country: IT (occurrence: IT)
  Receive Date: 20220615
  Receipt Date: 20220615
  Transmission Date: 20220720
  Serious: Yes (Other)
  Sender: FDA-Public Use
  Company Number: IT-MINISAL02-871304

PATIENT
  Age: 57 Year
  Sex: Female

DRUGS (2)
  1. IRINOTECAN [Suspect]
     Active Substance: IRINOTECAN
     Indication: Lung neoplasm malignant
     Dosage: 300 MILLIGRAM, CYCLICAL
     Route: 042
     Dates: start: 20220429
  2. FLUOROURACIL [Suspect]
     Active Substance: FLUOROURACIL
     Indication: Lung neoplasm malignant
     Dosage: 4000 MILLIGRAM, CYCLICAL
     Route: 042
     Dates: start: 20220429

REACTIONS (1)
  - Neutropenia [Recovering/Resolving]

NARRATIVE: CASE EVENT DATE: 20220512
